FAERS Safety Report 6288336-3 (Version None)
Quarter: 2009Q3

REPORT INFORMATION
  Report Type: 
  Country: None (occurrence: None)
  Receive Date: 20090729
  Receipt Date: 20090716
  Transmission Date: 20100115
  Serious: Yes (Hospitalization)
  Sender: FDA-Public Use
  Company Number: PHHY2009CH29857

PATIENT
  Age: 75 Year
  Sex: Female

DRUGS (1)
  1. LESCOL [Suspect]
     Dosage: 20 MG PER DAY
     Dates: start: 20081114, end: 20081201

REACTIONS (7)
  - FAECES PALE [None]
  - HEPATIC CYST [None]
  - HEPATIC ENZYME INCREASED [None]
  - HEPATIC STEATOSIS [None]
  - LIVER INJURY [None]
  - NAUSEA [None]
  - URINE COLOUR ABNORMAL [None]
